FAERS Safety Report 5605370-4 (Version None)
Quarter: 2008Q1

REPORT INFORMATION
  Report Type: 
  Country: None (occurrence: None)
  Receive Date: 20080123
  Receipt Date: 20080107
  Transmission Date: 20080703
  Serious: Yes (Other)
  Sender: FDA-Public Use
  Company Number: 2008BI000638

PATIENT
  Age: 41 Year
  Sex: Female

DRUGS (1)
  1. TYSABRI [Suspect]
     Indication: MULTIPLE SCLEROSIS
     Dosage: 300 MG, QM; IV
     Route: 042
     Dates: start: 20070913

REACTIONS (7)
  - EYE ROLLING [None]
  - FAECAL INCONTINENCE [None]
  - FLUSHING [None]
  - INFUSION RELATED REACTION [None]
  - PANIC ATTACK [None]
  - UNRESPONSIVE TO STIMULI [None]
  - VEIN DISORDER [None]
